FAERS Safety Report 19031815 (Version 1)
Quarter: 2021Q1

REPORT INFORMATION
  Report Type: Spontaneous
  Country: IN (occurrence: IN)
  Receive Date: 20210319
  Receipt Date: 20210319
  Transmission Date: 20210420
  Serious: Yes (Death, Other)
  Sender: FDA-Public Use
  Company Number: IN-PFIZER INC-2021277871

PATIENT

DRUGS (2)
  1. PALBACE [Suspect]
     Active Substance: PALBOCICLIB
     Dosage: 125 MG
  2. PALBACE [Suspect]
     Active Substance: PALBOCICLIB
     Dosage: 100 MG

REACTIONS (2)
  - Death [Fatal]
  - Neutropenia [Unknown]
